FAERS Safety Report 6991332-1 (Version None)
Quarter: 2010Q3

REPORT INFORMATION
  Report Type: 
  Country: None (occurrence: None)
  Receive Date: 20100916
  Receipt Date: 20090818
  Transmission Date: 20110219
  Serious: No
  Sender: FDA-Public Use
  Company Number: US-WYE-H10640709

PATIENT
  Sex: Female
  Weight: 72.64 kg

DRUGS (7)
  1. PRISTIQ [Suspect]
     Indication: DEPRESSION
     Route: 048
     Dates: start: 20090721, end: 20090816
  2. EVISTA [Concomitant]
  3. LAMICTAL [Concomitant]
  4. TETRACYCLINE [Concomitant]
  5. IRON [Concomitant]
  6. CALCIUM [Concomitant]
  7. WELLBUTRIN [Concomitant]

REACTIONS (7)
  - DIZZINESS [None]
  - DRUG WITHDRAWAL SYNDROME [None]
  - DYSPNOEA [None]
  - HYPERPHAGIA [None]
  - INCREASED APPETITE [None]
  - NAUSEA [None]
  - WEIGHT INCREASED [None]
